FAERS Safety Report 5019976-7 (Version None)
Quarter: 2006Q2

REPORT INFORMATION
  Report Type: 
  Country: None (occurrence: None)
  Receive Date: 20060607
  Receipt Date: 20060518
  Transmission Date: 20061013
  Serious: Yes (Other)
  Sender: FDA-Public Use
  Company Number: PHBS2006IE07456

PATIENT
  Age: 45 Year
  Sex: Male

DRUGS (3)
  1. GLEEVEC [Suspect]
     Indication: CHRONIC MYELOID LEUKAEMIA
     Dosage: 600 MG/D
  2. GLEEVEC [Suspect]
     Dosage: 800 MG/D
  3. GLEEVEC [Suspect]
     Dosage: 400 MG/D

REACTIONS (2)
  - MUSCLE SPASMS [None]
  - PERONEAL NERVE PALSY [None]
